FAERS Safety Report 5216587-5 (Version None)
Quarter: 2007Q1

REPORT INFORMATION
  Report Type: 
  Country: None (occurrence: None)
  Receive Date: 20061130
  Receipt Date: 20060809
  Transmission Date: 20070707
  Serious: Yes (Hospitalization, Other)
  Sender: FDA-Public Use
  Company Number: US200608002774

PATIENT
  Age: 52 Year
  Sex: Female

DRUGS (5)
  1. ZYPREXA [Suspect]
     Indication: ANXIETY
     Dosage: SEE IMAGE
     Dates: start: 20011001, end: 20050401
  2. ZYPREXA [Suspect]
     Indication: ANXIETY
     Dosage: SEE IMAGE
     Dates: start: 20050401
  3. EFFEXOR [Concomitant]
  4. METOPROLOL TARTRATE [Concomitant]
  5. FLUOXETINE HCL [Concomitant]

REACTIONS (8)
  - BLOOD CHOLESTEROL INCREASED [None]
  - BLOOD TRIGLYCERIDES INCREASED [None]
  - CEREBROVASCULAR DISORDER [None]
  - DIABETES MELLITUS [None]
  - HYPERTENSION [None]
  - METABOLIC DISORDER [None]
  - OBESITY [None]
  - SUICIDE ATTEMPT [None]
